FAERS Safety Report 5738428-X (Version None)
Quarter: 2008Q2

REPORT INFORMATION
  Report Type: 
  Country: None (occurrence: None)
  Receive Date: 20080513
  Receipt Date: 20080425
  Transmission Date: 20081010
  Serious: Yes (Other)
  Sender: FDA-Public Use
  Company Number: 2008SP008462

PATIENT
  Age: 62 Year
  Sex: Female

DRUGS (5)
  1. MIRALAX (POLYETHYLENE GLUCOL 3350) (17 GM) [Suspect]
     Dosage: PO
     Route: 048
     Dates: start: 20080423, end: 20080424
  2. NEXIUM [Concomitant]
  3. ANTIVERT [Concomitant]
  4. CALAN [Concomitant]
  5. XANAX [Concomitant]

REACTIONS (2)
  - RECTAL HAEMORRHAGE [None]
  - RECTAL SPASM [None]
